FAERS Safety Report 4318430-5 (Version None)
Quarter: 2004Q1

REPORT INFORMATION
  Report Type: 
  Country: None (occurrence: None)
  Receive Date: 20040315
  Receipt Date: 20040301
  Transmission Date: 20041129
  Serious: No
  Sender: FDA-Public Use
  Company Number: 04P-144-0250316-00

PATIENT

DRUGS (1)
  1. DEPAKENE [Suspect]
     Indication: DRUG EXPOSURE DURING PREGNANCY

REACTIONS (3)
  - FOETAL ARRHYTHMIA [None]
  - MATERNAL DRUGS AFFECTING FOETUS [None]
  - SUPRAVENTRICULAR TACHYCARDIA [None]
